FAERS Safety Report 18034456 (Version 1)
Quarter: 2020Q3

REPORT INFORMATION
  Report Type: Spontaneous
  Country: US (occurrence: US)
  Receive Date: 20200716
  Receipt Date: 20200716
  Transmission Date: 20201103
  Serious: No
  Sender: FDA-Public Use
  Company Number: US-PFIZER INC-2020271612

PATIENT

DRUGS (1)
  1. IBRANCE [Suspect]
     Active Substance: PALBOCICLIB
     Dosage: UNK, CYCLIC

REACTIONS (5)
  - Skin burning sensation [Unknown]
  - Eye pruritus [Unknown]
  - Swollen tongue [Unknown]
  - Pruritus [Unknown]
  - Glossodynia [Unknown]
